FAERS Safety Report 10554051 (Version 5)
Quarter: 2015Q2

REPORT INFORMATION
  Report Type: Spontaneous
  Country: US (occurrence: None)
  Receive Date: 20141028
  Receipt Date: 20150407
  Transmission Date: 20150821
  Serious: Yes (Other)
  Sender: FDA-Public Use
  Company Number: 2014JUB00174

PATIENT
  Age: 47 Year
  Sex: Female
  Weight: 72.6 kg

DRUGS (5)
  1. PREDNISONE. [Suspect]
     Active Substance: PREDNISONE
     Indication: ASTHMA
     Dosage: UNK UNK, 1X DAY, ORAL
     Route: 048
     Dates: start: 201405, end: 201406
  2. XOPENEX [Concomitant]
     Active Substance: LEVALBUTEROL HYDROCHLORIDE
  3. ALBUTEROL. [Concomitant]
     Active Substance: ALBUTEROL
     Indication: ASTHMA
     Route: 048
     Dates: start: 201405, end: 201406
  4. SINGULAIR [Concomitant]
     Active Substance: MONTELUKAST SODIUM
  5. SYMBICORT [Concomitant]
     Active Substance: BUDESONIDE\FORMOTEROL FUMARATE DIHYDRATE

REACTIONS (13)
  - Skin wrinkling [None]
  - Cushingoid [None]
  - Swelling face [None]
  - Facial pain [None]
  - Peripheral swelling [None]
  - Dyspnoea [None]
  - Nocturnal dyspnoea [None]
  - Local swelling [None]
  - Skin disorder [None]
  - Asthma [None]
  - Skin discolouration [None]
  - Fat tissue increased [None]
  - Skin atrophy [None]

NARRATIVE: CASE EVENT DATE: 2014
